FAERS Safety Report 6988336-1 (Version None)
Quarter: 2010Q3

REPORT INFORMATION
  Report Type: 
  Country: None (occurrence: None)
  Receive Date: 20100916
  Receipt Date: 20100826
  Transmission Date: 20110219
  Serious: Yes (Life-Threatening)
  Sender: FDA-Public Use
  Company Number: GR-SANOFI-AVENTIS-2010SA054902

PATIENT
  Age: 79 Year
  Sex: Male
  Weight: 70 kg

DRUGS (7)
  1. ISCOVER [Suspect]
     Route: 048
     Dates: start: 20090320
  2. SALOSPIR [Concomitant]
     Indication: ACUTE CORONARY SYNDROME
     Route: 065
     Dates: start: 20090320
  3. LOPRESSOR [Concomitant]
     Indication: ACUTE CORONARY SYNDROME
     Route: 065
     Dates: start: 20090320
  4. TRIATEC [Concomitant]
     Indication: ACUTE CORONARY SYNDROME
     Route: 065
     Dates: start: 20090320
  5. PANTOPRAZOLE [Concomitant]
     Indication: PROPHYLAXIS
     Route: 065
     Dates: start: 20090320
  6. ATORVASTATIN CALCIUM [Concomitant]
     Route: 065
     Dates: start: 20090320
  7. LASIX [Concomitant]
     Route: 065
     Dates: start: 20090320

REACTIONS (1)
  - PULMONARY OEDEMA [None]
